FAERS Safety Report 4790287-8 (Version None)
Quarter: 2005Q3

REPORT INFORMATION
  Report Type: 
  Country: None (occurrence: None)
  Receive Date: 20050914
  Receipt Date: 20041208
  Transmission Date: 20060218
  Serious: Yes (Hospitalization)
  Sender: FDA-Public Use
  Company Number: 163-20785-04120254

PATIENT
  Age: 62 Year
  Sex: Male
  Weight: 82 kg

DRUGS (12)
  1. THALOMID [Suspect]
     Indication: GLIOBLASTOMA MULTIFORME
     Dosage: 100-200 MG, DAILY, ORAL
     Route: 048
     Dates: start: 20041012
  2. CPT-11 (IRINOTECAN) (UNKNOWN) [Suspect]
     Indication: GLIOBLASTOMA MULTIFORME
     Dosage: 350 MG/M2, EVERY 3 WKS, INTRAVENOUS
     Route: 042
     Dates: start: 20041012, end: 20041123
  3. ATIVAN [Concomitant]
  4. COUMADIN [Concomitant]
  5. LOPERAMIDE (LOPERAMIDE) (UNKNOWN) [Concomitant]
  6. CENTRUM SILVER (CENTRUM SILVER) (TABLETS) [Concomitant]
  7. SENNA (SENNA) (TABLETS) [Concomitant]
  8. DOCUSATE SODIUM (DOCUSATE SODIUM) (TABLETS) [Concomitant]
  9. PREDNISONE OPHTHALMIC DROPS (PREDNISONE) [Concomitant]
  10. ANZEMET (DOLASETRON MESILATE) [Concomitant]
  11. TYLENOL [Concomitant]
  12. KEPPRA (LEVETIRACETAM) (UNKNOWN) [Concomitant]

REACTIONS (3)
  - BRAIN OEDEMA [None]
  - DISEASE PROGRESSION [None]
  - NERVOUS SYSTEM DISORDER [None]
